FAERS Safety Report 20317496 (Version 1)
Quarter: 2022Q1

REPORT INFORMATION
  Report Type: Spontaneous
  Country: US (occurrence: None)
  Receive Date: 20220110
  Receipt Date: 20220110
  Transmission Date: 20220423
  Serious: No
  Sender: FDA-Public Use
  Company Number: 2022A006390

PATIENT
  Sex: Male
  Weight: 111.1 kg

DRUGS (1)
  1. BUDESONIDE\FORMOTEROL\GLYCOPYRRONIUM [Suspect]
     Active Substance: BUDESONIDE\FORMOTEROL\GLYCOPYRRONIUM
     Indication: Chronic obstructive pulmonary disease
     Dosage: 2 PUFF TWO TIMES A DAY
     Route: 055

REACTIONS (4)
  - Weight increased [Unknown]
  - Intentional device misuse [Unknown]
  - Incorrect dose administered by device [Unknown]
  - Device malfunction [Unknown]
